FAERS Safety Report 11456204 (Version 1)
Quarter: 2015Q3

REPORT INFORMATION
  Report Type: Spontaneous
  Country: US (occurrence: US)
  Receive Date: 20150903
  Receipt Date: 20150903
  Transmission Date: 20151125
  Serious: No
  Sender: FDA-Public Use
  Company Number: US-PFIZER INC-2015291725

PATIENT
  Age: 73 Year
  Sex: Female
  Weight: 61 kg

DRUGS (1)
  1. GABAPENTIN. [Suspect]
     Active Substance: GABAPENTIN
     Dosage: UNK

REACTIONS (5)
  - Dysarthria [Unknown]
  - Dizziness [Unknown]
  - Slow speech [Unknown]
  - Cold sweat [Unknown]
  - Asthenia [Unknown]

NARRATIVE: CASE EVENT DATE: 2015
